FAERS Safety Report 5481761-X (Version None)
Quarter: 2007Q3

REPORT INFORMATION
  Report Type: 
  Country: None (occurrence: None)
  Receive Date: 20070917
  Receipt Date: 20061109
  Transmission Date: 20080115
  Serious: Yes (Hospitalization)
  Sender: FDA-Public Use
  Company Number: S06-USA-04753-01

PATIENT
  Age: 47 Year
  Sex: Female

DRUGS (2)
  1. CELEXA [Suspect]
  2. LUPRON DEPOT [Suspect]
     Indication: MENORRHAGIA
     Dosage: 3.75 MG QMON IM
     Route: 030
     Dates: start: 20060601, end: 20060901

REACTIONS (2)
  - AGGRESSION [None]
  - MANIA [None]
